FAERS Safety Report 8739405 (Version 2)
Quarter: 2012Q4

REPORT INFORMATION
  Report Type: 
  Country: US (occurrence: US)
  Receive Date: 20120823
  Receipt Date: 20120911
  Transmission Date: 20130627
  Serious: Yes (Life-Threatening, Hospitalization)
  Sender: FDA-Public Use
  Company Number: US-009507513-1208USA007106

PATIENT

DRUGS (3)
  1. SAPHRIS [Suspect]
     Dosage: UNK
  2. SAPHRIS [Suspect]
     Dosage: 5 mg, bid
  3. SEROQUEL [Concomitant]

REACTIONS (4)
  - Blood pressure decreased [Unknown]
  - Dizziness [Recovered/Resolved]
  - Syncope [Recovered/Resolved]
  - Fall [None]
